FAERS Safety Report 4346363-7 (Version None)
Quarter: 2004Q1

REPORT INFORMATION
  Report Type: 
  Country: None (occurrence: None)
  Receive Date: 20040325
  Receipt Date: 20030521
  Transmission Date: 20041129
  Serious: No
  Sender: FDA-Public Use
  Company Number: USA030537720

PATIENT
  Age: 77 Year
  Sex: Female
  Weight: 65 kg

DRUGS (6)
  1. FORTEO [Suspect]
     Dates: start: 20030320
  2. CALTRATE (CALCIUM CARBONATE) [Concomitant]
  3. MAGNESIUM [Concomitant]
  4. NEXIUM (ESOPRAZOLE) [Concomitant]
  5. NITROFURANTOIN [Concomitant]
  6. MULTIVITAMIN [Concomitant]

REACTIONS (2)
  - LIMB DISCOMFORT [None]
  - TOOTH INJURY [None]
